FAERS Safety Report 9941969 (Version 1)
Quarter: 2014Q1

REPORT INFORMATION
  Report Type: Report from Study
  Country: US (occurrence: US)
  Receive Date: 20140303
  Receipt Date: 20140303
  Transmission Date: 20141002
  Serious: No
  Sender: FDA-Public Use
  Company Number: US-ABBVIE-13P-163-1039484-00

PATIENT
  Age: 46 Year
  Sex: Female

DRUGS (8)
  1. HUMIRA [Suspect]
     Indication: RHEUMATOID ARTHRITIS
     Dates: start: 201201
  2. PRAVASTATIN [Concomitant]
     Indication: BLOOD CHOLESTEROL INCREASED
     Dosage: 20MG DAILY
  3. LORAZEPAM [Concomitant]
     Indication: ANXIETY
  4. ZOLOFT [Concomitant]
     Indication: AFFECTIVE DISORDER
     Dosage: 100MG DAILY
  5. ZOLOFT [Concomitant]
     Indication: ANXIETY
  6. PERCOCET [Concomitant]
     Indication: PAIN
  7. ALBUTEROL [Concomitant]
     Indication: ASTHMA
  8. PREVACID [Concomitant]
     Indication: GASTROOESOPHAGEAL REFLUX DISEASE

REACTIONS (4)
  - Fibromyalgia [Not Recovered/Not Resolved]
  - Myalgia [Not Recovered/Not Resolved]
  - Dysphagia [Not Recovered/Not Resolved]
  - Pain of skin [Not Recovered/Not Resolved]
